FAERS Safety Report 10916495 (Version 2)
Quarter: 2015Q2

REPORT INFORMATION
  Report Type: Report from Study
  Country: US (occurrence: US)
  Receive Date: 20150316
  Receipt Date: 20150416
  Transmission Date: 20150821
  Serious: Yes (Hospitalization)
  Sender: FDA-Public Use
  Company Number: US-ACTELION-A-US2015-114312

PATIENT
  Age: 51 Year
  Sex: Female

DRUGS (8)
  1. AMIOBAL [Concomitant]
     Dosage: 200 MG, QD
  2. LASIX [Concomitant]
     Active Substance: FUROSEMIDE
     Dosage: 20 MG, QD
  3. COLACE [Concomitant]
     Active Substance: DOCUSATE SODIUM
     Dosage: 100 MG, QD
  4. MACITENTAN [Suspect]
     Active Substance: MACITENTAN
     Indication: PULMONARY ARTERIAL HYPERTENSION
     Dosage: 10 MG, QD
     Route: 048
     Dates: start: 20140617
  5. COUMADIN [Concomitant]
     Active Substance: WARFARIN SODIUM
     Dosage: 2.5 MG, QD
  6. TYLENOL [Concomitant]
     Active Substance: ACETAMINOPHEN
     Dosage: 500 MG, BID, AS NEEDED
     Dates: start: 201503
  7. POTASSIUM [Concomitant]
     Active Substance: POTASSIUM
  8. METOPROLOL [Concomitant]
     Active Substance: METOPROLOL
     Dosage: UNK
     Dates: end: 20150307

REACTIONS (6)
  - Dyspnoea [Recovered/Resolved]
  - Cardiac pacemaker insertion [Recovered/Resolved]
  - Oral infection [Unknown]
  - Decreased appetite [Recovering/Resolving]
  - Heart valve replacement [Recovered/Resolved]
  - Oral surgery [Unknown]

NARRATIVE: CASE EVENT DATE: 20140718
